FAERS Safety Report 8992003 (Version 2)
Quarter: 2013Q3

REPORT INFORMATION
  Report Type: Spontaneous
  Country: US (occurrence: US)
  Receive Date: 20121231
  Receipt Date: 20130919
  Transmission Date: 20140515
  Serious: Yes (Other)
  Sender: FDA-Public Use
  Company Number: CHPA2012US025519

PATIENT
  Age: 69 Year
  Sex: Male

DRUGS (5)
  1. EXCEDRIN ES BACK + BODY [Suspect]
     Indication: PROPHYLAXIS
     Dosage: 1 DF, PRN
     Route: 048
  2. EXCEDRIN ES BACK + BODY [Suspect]
     Dosage: 1 DF, QD
     Route: 048
     Dates: start: 201210
  3. EXCEDRIN ES BACK + BODY [Suspect]
     Dosage: 1 DF, UNK
     Route: 048
     Dates: start: 2008
  4. MUSCLE RELAXANTS [Concomitant]
     Dosage: UNK, UNK
  5. TRAMADOL [Concomitant]
     Dosage: UNK, UNK

REACTIONS (10)
  - Diabetes mellitus [Recovered/Resolved]
  - Glucose tolerance impaired [Not Recovered/Not Resolved]
  - Renal disorder [Not Recovered/Not Resolved]
  - Intervertebral disc disorder [Not Recovered/Not Resolved]
  - Sciatic nerve injury [Not Recovered/Not Resolved]
  - Arthritis [Not Recovered/Not Resolved]
  - Blood glucose increased [Recovered/Resolved]
  - Off label use [Unknown]
  - Underdose [Unknown]
  - Incorrect drug administration duration [Unknown]
